FAERS Safety Report 9996877 (Version 1)
Quarter: 2014Q1

REPORT INFORMATION
  Report Type: Spontaneous
  Country: US (occurrence: US)
  Receive Date: 20140311
  Receipt Date: 20140311
  Transmission Date: 20141002
  Serious: No
  Sender: FDA-Public Use
  Company Number: US-GLAXOSMITHKLINE-A1035015A

PATIENT
  Age: 33 Year
  Sex: Female

DRUGS (1)
  1. NICORETTE FRUIT CHILL OTC 4MG [Suspect]
     Indication: EX-TOBACCO USER
     Dates: start: 20130725

REACTIONS (2)
  - Glossodynia [Not Recovered/Not Resolved]
  - Throat irritation [Not Recovered/Not Resolved]
